FAERS Safety Report 4617233-1 (Version None)
Quarter: 2005Q1

REPORT INFORMATION
  Report Type: 
  Country: None (occurrence: None)
  Receive Date: 20050318
  Receipt Date: 20050302
  Transmission Date: 20050727
  Serious: Yes (Death)
  Sender: FDA-Public Use
  Company Number: L04-USA-07403-12

PATIENT
  Age: 35 Year
  Sex: Female

DRUGS (5)
  1. CITALOPRAM HYDROBROMIDE [Suspect]
  2. TRAMADOL HCL [Suspect]
  3. GABAPENTIN [Suspect]
  4. METOCLOPRAMIDE [Suspect]
  5. OMEPRAZOLE [Suspect]

REACTIONS (7)
  - CARDIAC ARREST [None]
  - COMA [None]
  - COMPLETED SUICIDE [None]
  - CONVULSION [None]
  - HYPOTENSION [None]
  - HYPOXIC ENCEPHALOPATHY [None]
  - INTENTIONAL MISUSE [None]
